FAERS Safety Report 18101761 (Version 2)
Quarter: 2020Q3

REPORT INFORMATION
  Report Type: Report from Study
  Country: BR (occurrence: BR)
  Receive Date: 20200802
  Receipt Date: 20200807
  Transmission Date: 20201103
  Serious: Yes (Life-Threatening, Hospitalization)
  Sender: FDA-Public Use
  Company Number: NVSC2020BR215396

PATIENT
  Age: 58 Year
  Sex: Male

DRUGS (4)
  1. CABERGOLINE. [Concomitant]
     Active Substance: CABERGOLINE
     Indication: PRODUCT USED FOR UNKNOWN INDICATION
     Dosage: UNK
     Route: 065
     Dates: start: 2012
  2. SANDOSTATIN LAR DEPOT [Suspect]
     Active Substance: OCTREOTIDE ACETATE
  3. SANDOSTATIN LAR DEPOT [Suspect]
     Active Substance: OCTREOTIDE ACETATE
     Indication: ACROMEGALY
     Dosage: 20 MG
     Route: 065
     Dates: start: 2012
  4. SANDOSTATIN LAR DEPOT [Suspect]
     Active Substance: OCTREOTIDE ACETATE

REACTIONS (12)
  - Gait inability [Recovered/Resolved]
  - Vocal cord disorder [Recovering/Resolving]
  - Cardiac murmur [Recovered/Resolved]
  - Pain [Recovered/Resolved]
  - Spinal disorder [Recovering/Resolving]
  - Nosocomial infection [Recovered/Resolved]
  - Dyspnoea [Recovering/Resolving]
  - Coma [Unknown]
  - Fatigue [Recovered/Resolved]
  - Muscle atrophy [Unknown]
  - Mitral valve disease [Unknown]
  - Dysarthria [Unknown]

NARRATIVE: CASE EVENT DATE: 2015
